FAERS Safety Report 22034472 (Version 1)
Quarter: 2023Q1

REPORT INFORMATION
  Report Type: Spontaneous
  Country: US (occurrence: None)
  Receive Date: 20230222
  Receipt Date: 20230222
  Transmission Date: 20230418
  Serious: No
  Sender: FDA-Public Use
  Company Number: None

PATIENT
  Age: 48 Year
  Sex: Male
  Weight: 83.25 kg

DRUGS (6)
  1. TADALAFIL [Suspect]
     Active Substance: TADALAFIL
     Indication: Erectile dysfunction
     Dosage: FREQUENCY : AS NEEDED;?
     Route: 060
     Dates: start: 20230130, end: 20230218
  2. CABERGOLINE [Concomitant]
  3. TESTOSTERONE [Concomitant]
     Active Substance: TESTOSTERONE
  4. Psyllium fiber [Concomitant]
  5. VITAMIN D [Concomitant]
     Active Substance: VITAMIN D NOS
  6. FERROUS GLUCONATE [Suspect]
     Active Substance: FERROUS GLUCONATE

REACTIONS (1)
  - Tongue discomfort [None]

NARRATIVE: CASE EVENT DATE: 20230219
